FAERS Safety Report 15758092 (Version 1)
Quarter: 2018Q4

REPORT INFORMATION
  Report Type: Report from Study
  Country: None (occurrence: US)
  Receive Date: 20181225
  Receipt Date: 20181225
  Transmission Date: 20190205
  Serious: Yes (Other)
  Sender: FDA-Public Use
  Company Number: US-ABBVIE-18K-163-2588784-00

PATIENT
  Age: 58 Year
  Sex: Female
  Weight: 68.1 kg

DRUGS (2)
  1. HUMIRA [Suspect]
     Active Substance: ADALIMUMAB
     Indication: RHEUMATOID ARTHRITIS
     Route: 058
     Dates: start: 2016, end: 201712
  2. HUMIRA [Suspect]
     Active Substance: ADALIMUMAB
     Route: 058
     Dates: start: 201805

REACTIONS (16)
  - Postoperative wound complication [Recovered/Resolved]
  - Nerve block [Unknown]
  - Procedural pain [Recovered/Resolved]
  - Device issue [Recovered/Resolved]
  - Foot deformity [Recovered/Resolved]
  - Joint arthroplasty [Not Recovered/Not Resolved]
  - Ligament rupture [Recovered/Resolved]
  - Post procedural complication [Recovered/Resolved]
  - Incorrect dose administered [Unknown]
  - Malaise [Not Recovered/Not Resolved]
  - Wound [Recovering/Resolving]
  - Device issue [Unknown]
  - Osteoarthritis [Recovered/Resolved]
  - Limb injury [Not Recovered/Not Resolved]
  - Injection site pain [Not Recovered/Not Resolved]
  - Pain [Not Recovered/Not Resolved]

NARRATIVE: CASE EVENT DATE: 2017
